FAERS Safety Report 12445026 (Version 1)
Quarter: 2016Q2

REPORT INFORMATION
  Report Type: Spontaneous
  Country: US (occurrence: US)
  Receive Date: 20160607
  Receipt Date: 20160607
  Transmission Date: 20160815
  Serious: Yes (Hospitalization)
  Sender: FDA-Public Use
  Company Number: US-IMPAX LABORATORIES, INC-2016-IPXL-00591

PATIENT
  Age: 58 Year
  Sex: Male

DRUGS (2)
  1. NAPROXEN. [Interacting]
     Active Substance: NAPROXEN
     Indication: BACK PAIN
     Dosage: UNK
     Route: 065
  2. PHENYTOIN CHEWABLE [Suspect]
     Active Substance: PHENYTOIN
     Indication: GENERALISED TONIC-CLONIC SEIZURE
     Dosage: 200 MG, 2 /DAY
     Route: 065

REACTIONS (5)
  - Nystagmus [Recovered/Resolved]
  - Vision blurred [Recovered/Resolved]
  - Toxicity to various agents [Recovered/Resolved]
  - Drug interaction [Recovered/Resolved]
  - Dizziness [Recovered/Resolved]
